FAERS Safety Report 24893109 (Version 2)
Quarter: 2025Q1

REPORT INFORMATION
  Report Type: Report from Study
  Country: IN (occurrence: IN)
  Receive Date: 20250128
  Receipt Date: 20250303
  Transmission Date: 20250408
  Serious: Yes (Other)
  Sender: ROCHE
  Company Number: IN-ROCHE-10000164480

PATIENT
  Age: 74 Year
  Sex: Male

DRUGS (1)
  1. TECENTRIQ [Suspect]
     Active Substance: ATEZOLIZUMAB
     Indication: Hepatocellular carcinoma
     Route: 042
     Dates: start: 20240408

REACTIONS (23)
  - Pain [Unknown]
  - Hypertension [Unknown]
  - Hepatic hypertrophy [Unknown]
  - Fat tissue increased [Unknown]
  - Cyst [Unknown]
  - Tumour invasion [Unknown]
  - Hepatic lesion [Unknown]
  - Mass [Unknown]
  - Tumour necrosis [Unknown]
  - Neoplasm [Unknown]
  - Hepatic vein thrombosis [Unknown]
  - Vascular compression [Unknown]
  - Lymphadenopathy [Unknown]
  - Metastases to lung [Unknown]
  - Nodule [Unknown]
  - Osteolysis [Unknown]
  - Pulmonary fibrosis [Unknown]
  - Hepatic steatosis [Unknown]
  - Hepatic cyst [Unknown]
  - Lung cyst [Unknown]
  - Atelectasis [Unknown]
  - Pulmonary granuloma [Unknown]
  - Bronchiectasis [Unknown]

NARRATIVE: CASE EVENT DATE: 20240603
